FAERS Safety Report 8579916-0 (Version None)
Quarter: 2012Q3

REPORT INFORMATION
  Report Type: 
  Country: None (occurrence: None)
  Receive Date: 20120731
  Receipt Date: 20120731
  Transmission Date: 20120928
  Serious: Yes (Disabling)
  Sender: FDA-Public Use
  Company Number: None

PATIENT
  Age: 36 Year
  Sex: Female
  Weight: 55 kg

DRUGS (1)
  1. ZOLOFT [Suspect]

REACTIONS (6)
  - SPEECH DISORDER [None]
  - GAIT DISTURBANCE [None]
  - ANXIETY [None]
  - FEAR [None]
  - PRODUCT QUALITY ISSUE [None]
  - NERVOUS SYSTEM DISORDER [None]
